FAERS Safety Report 23290743 (Version 1)
Quarter: 2023Q4

REPORT INFORMATION
  Report Type: Spontaneous
  Country: US (occurrence: US)
  Receive Date: 20231213
  Receipt Date: 20231213
  Transmission Date: 20240110
  Serious: Yes (Other)
  Sender: FDA-Public Use
  Company Number: US-CADILA HEALTHCARE LIMITED-US-ZYDUS-100955

PATIENT

DRUGS (2)
  1. LEVOTHYROXINE [Suspect]
     Active Substance: LEVOTHYROXINE
     Indication: Hyponatraemia
     Dosage: UNK
     Route: 048
  2. UREA [Concomitant]
     Active Substance: UREA
     Indication: Product used for unknown indication

REACTIONS (2)
  - Adrenal insufficiency [Unknown]
  - Condition aggravated [Unknown]
